FAERS Safety Report 7714252-3 (Version None)
Quarter: 2011Q3

REPORT INFORMATION
  Report Type: 
  Country: None (occurrence: None)
  Receive Date: 20110829
  Receipt Date: 20110818
  Transmission Date: 20111222
  Serious: No
  Sender: FDA-Public Use
  Company Number: US-BIOGENIDEC-2011BI031825

PATIENT
  Age: 39 Year
  Sex: Male

DRUGS (2)
  1. TYSABRI [Suspect]
     Indication: MULTIPLE SCLEROSIS
     Route: 042
     Dates: start: 20110712
  2. TYSABRI [Suspect]
     Route: 042
     Dates: start: 20100316, end: 20100316

REACTIONS (5)
  - ERYTHEMA [None]
  - OCULAR HYPERAEMIA [None]
  - CHEST DISCOMFORT [None]
  - DYSPNOEA [None]
  - BACK PAIN [None]
